FAERS Safety Report 16565898 (Version 1)
Quarter: 2019Q3

REPORT INFORMATION
  Report Type: Spontaneous
  Country: US (occurrence: US)
  Receive Date: 20190712
  Receipt Date: 20190712
  Transmission Date: 20191004
  Serious: No
  Sender: FDA-Public Use
  Company Number: US-PFIZER INC-2019293161

PATIENT
  Age: 11 Month
  Sex: Female
  Weight: 9.16 kg

DRUGS (1)
  1. GENOTROPIN [Suspect]
     Active Substance: SOMATROPIN
     Indication: PRADER-WILLI SYNDROME
     Dosage: 0.3 MG, DAILY (IN EITHER THIGH OR BUTTOCK DAILY)
     Route: 058

REACTIONS (1)
  - Poor quality device used [Unknown]

NARRATIVE: CASE EVENT DATE: 20190702
